FAERS Safety Report 5195692-6 (Version None)
Quarter: 2006Q4

REPORT INFORMATION
  Report Type: 
  Country: None (occurrence: None)
  Receive Date: 20061226
  Receipt Date: 20061226
  Transmission Date: 20070319
  Serious: Yes (Life-Threatening, Hospitalization)
  Sender: FDA-Public Use
  Company Number: None

PATIENT
  Age: 51 Year
  Sex: Female
  Weight: 86.1834 kg

DRUGS (1)
  1. FLUCONAZOLE [Suspect]
     Indication: FUNGAL INFECTION
     Dosage: 1 TABLET ONCE A WEEK PO
     Route: 048
     Dates: start: 20060824, end: 20060920

REACTIONS (1)
  - DRUG HYPERSENSITIVITY [None]
